FAERS Safety Report 4573756-5 (Version None)
Quarter: 2005Q1

REPORT INFORMATION
  Report Type: 
  Country: None (occurrence: None)
  Receive Date: 20050203
  Receipt Date: 20050128
  Transmission Date: 20050727
  Serious: Yes (Hospitalization, Other)
  Sender: FDA-Public Use
  Company Number: KII-2005-0015002

PATIENT
  Age: 20 Year
  Sex: Male

DRUGS (5)
  1. OXYCONTIN [Suspect]
     Indication: DRUG USE FOR UNKNOWN INDICATION
     Dosage: ORAL
     Route: 048
  2. BENZODIAZEPINE DERIVATIVES [Suspect]
     Indication: DRUG USE FOR UNKNOWN INDICATION
     Dosage: ORAL
     Route: 048
  3. CANNABIS (CANNABIS) [Suspect]
     Indication: DRUG USE FOR UNKNOWN INDICATION
  4. BARBITURATES [Suspect]
     Indication: DRUG USE FOR UNKNOWN INDICATION
  5. UNKNOWN [Concomitant]

REACTIONS (17)
  - BLOOD AMYLASE INCREASED [None]
  - BLOOD CREATININE INCREASED [None]
  - BLOOD PRESSURE INCREASED [None]
  - BLOOD UREA INCREASED [None]
  - COMA [None]
  - FEELING JITTERY [None]
  - HEART RATE INCREASED [None]
  - HYPOPERFUSION [None]
  - HYPOXIA [None]
  - ISCHAEMIC HEPATITIS [None]
  - LETHARGY [None]
  - LUNG INFILTRATION [None]
  - MYOCARDIAL INFARCTION [None]
  - PLEURAL EFFUSION [None]
  - POLYSUBSTANCE ABUSE [None]
  - RESPIRATORY RATE INCREASED [None]
  - RHABDOMYOLYSIS [None]
